FAERS Safety Report 6069866-6 (Version None)
Quarter: 2009Q1

REPORT INFORMATION
  Report Type: 
  Country: None (occurrence: None)
  Receive Date: 20090209
  Receipt Date: 20081113
  Transmission Date: 20090719
  Serious: Yes (Other)
  Sender: FDA-Public Use
  Company Number: FR-ASTRAZENECA-2009CG00129

PATIENT
  Sex: Female

DRUGS (1)
  1. XYLOCAINE W/ EPINEPHRINE [Suspect]
     Route: 065

REACTIONS (1)
  - ANGIOEDEMA [None]
